FAERS Safety Report 12167841 (Version 1)
Quarter: 2016Q1

REPORT INFORMATION
  Report Type: Spontaneous
  Country: GB (occurrence: GB)
  Receive Date: 20160310
  Receipt Date: 20160310
  Transmission Date: 20160526
  Serious: Yes (Hospitalization, Congenital Anomaly, Other)
  Sender: FDA-Public Use
  Company Number: GB-BEH-2016059708

PATIENT
  Age: 28 Year
  Sex: Female
  Weight: 57 kg

DRUGS (2)
  1. ALL OTHER THERAPEUTIC PRODUCTS [Suspect]
     Active Substance: UNSPECIFIED INGREDIENT
     Indication: HEREDITARY ANGIOEDEMA
     Dosage: 0-5+ WEEKS OF GESTATION
     Route: 058
     Dates: end: 20140119
  2. BERINERT [Suspect]
     Active Substance: HUMAN C1-ESTERASE INHIBITOR
     Indication: HEREDITARY ANGIOEDEMA
     Dosage: 3 DOSES ADMINISTERED
     Route: 042
     Dates: start: 20140208, end: 20140216

REACTIONS (4)
  - Abortion spontaneous [Recovered/Resolved]
  - Benign hydatidiform mole [Recovered/Resolved]
  - Exposure during pregnancy [Recovered/Resolved]
  - Vaginal haemorrhage [Recovered/Resolved]

NARRATIVE: CASE EVENT DATE: 20140208
